FAERS Safety Report 9419351 (Version 1)
Quarter: 2013Q3

REPORT INFORMATION
  Report Type: Spontaneous
  Country: BR (occurrence: BR)
  Receive Date: 20130723
  Receipt Date: 20130723
  Transmission Date: 20140515
  Serious: Yes (Other)
  Sender: FDA-Public Use
  Company Number: B0909720A

PATIENT
  Age: 49 Year
  Sex: Male

DRUGS (4)
  1. LAMIVUDINE [Suspect]
     Indication: HIV INFECTION
     Dates: start: 200910
  2. TENOFOVIR [Suspect]
     Indication: HIV INFECTION
     Dates: start: 200910
  3. LOPINAVIR + RITONAVIR [Suspect]
     Indication: HIV INFECTION
     Dates: start: 2011
  4. EFAVIRENZ [Suspect]

REACTIONS (1)
  - Porphyria non-acute [None]
